FAERS Safety Report 8962649 (Version 1)
Quarter: 2012Q4

REPORT INFORMATION
  Report Type: Report from Study
  Country: US (occurrence: US)
  Receive Date: 20121213
  Receipt Date: 20121213
  Transmission Date: 20130627
  Serious: Yes (Hospitalization)
  Sender: FDA-Public Use
  Company Number: US-ABBOTT-12P-163-1017107-00

PATIENT
  Sex: Male
  Weight: 102.15 kg

DRUGS (6)
  1. HUMIRA [Suspect]
     Indication: ANKYLOSING SPONDYLITIS
     Dates: start: 201201, end: 20121130
  2. METHOTREXATE [Concomitant]
     Indication: ANKYLOSING SPONDYLITIS
  3. FOLIC ACID [Concomitant]
     Indication: VITAMIN SUPPLEMENTATION
  4. PANTOPRAZOLE [Concomitant]
     Indication: GASTRIC DISORDER
     Dates: start: 201205
  5. PANTOPRAZOLE [Concomitant]
     Indication: PROPHYLAXIS
  6. SIMVASTATIN [Concomitant]
     Indication: BLOOD CHOLESTEROL INCREASED

REACTIONS (6)
  - Angina unstable [Recovered/Resolved]
  - Plaque shift [Recovered/Resolved]
  - Coronary artery occlusion [Recovered/Resolved]
  - Myocardial infarction [Recovered/Resolved]
  - Activities of daily living impaired [Not Recovered/Not Resolved]
  - Oedema peripheral [Not Recovered/Not Resolved]
